FAERS Safety Report 16456115 (Version 2)
Quarter: 2019Q2

REPORT INFORMATION
  Report Type: Spontaneous
  Country: US (occurrence: US)
  Receive Date: 20190620
  Receipt Date: 20190627
  Transmission Date: 20190711
  Serious: Yes (Death, Hospitalization)
  Sender: FDA-Public Use
  Company Number: US-UNITED THERAPEUTICS-UNT-2019-009992

PATIENT
  Age: 78 Year
  Sex: Female
  Weight: 63.39 kg

DRUGS (1)
  1. REMODULIN [Suspect]
     Active Substance: TREPROSTINIL
     Indication: PULMONARY ARTERIAL HYPERTENSION
     Dosage: 0.006 ?G/KG, CONTINUING
     Route: 058
     Dates: start: 20181205

REACTIONS (3)
  - Dyspnoea [Unknown]
  - Fluid overload [Unknown]
  - Death [Fatal]

NARRATIVE: CASE EVENT DATE: 20190603
